FAERS Safety Report 5154381-4 (Version None)
Quarter: 2006Q4

REPORT INFORMATION
  Report Type: 
  Country: None (occurrence: None)
  Receive Date: 20061114
  Receipt Date: 20061031
  Transmission Date: 20070319
  Serious: Yes (Other)
  Sender: FDA-Public Use
  Company Number: 2006133957

PATIENT
  Age: 74 Year
  Sex: Female

DRUGS (2)
  1. PHENYTOIN SODIUM [Suspect]
     Indication: SYNCOPE
     Dosage: ORAL
     Route: 048
     Dates: start: 19860101, end: 20060701
  2. PHENYTOIN [Suspect]
     Dates: start: 20060701

REACTIONS (5)
  - DIZZINESS [None]
  - SYNCOPE [None]
  - THERAPEUTIC RESPONSE UNEXPECTED WITH DRUG SUBSTITUTION [None]
  - TINNITUS [None]
  - VERTIGO [None]
